FAERS Safety Report 8559515-7 (Version None)
Quarter: 2012Q3

REPORT INFORMATION
  Report Type: 
  Country: None (occurrence: None)
  Receive Date: 20120802
  Receipt Date: 20120723
  Transmission Date: 20120928
  Serious: Yes (Hospitalization)
  Sender: FDA-Public Use
  Company Number: US-BAYER-2012-007538

PATIENT
  Age: 19 Year
  Sex: Female
  Weight: 63.492 kg

DRUGS (1)
  1. YAZ [Suspect]
     Indication: ACNE
     Dosage: UNK
     Dates: start: 20090410, end: 20091216

REACTIONS (10)
  - DEEP VEIN THROMBOSIS [None]
  - FATIGUE [None]
  - INJURY [None]
  - VARICOSE VEIN [None]
  - EMOTIONAL DISTRESS [None]
  - PAIN [None]
  - SWELLING [None]
  - MUSCULOSKELETAL STIFFNESS [None]
  - GAIT DISTURBANCE [None]
  - VENOUS INJURY [None]
